FAERS Safety Report 18087659 (Version 3)
Quarter: 2021Q2

REPORT INFORMATION
  Report Type: Report from Study
  Country: None (occurrence: IL)
  Receive Date: 20200729
  Receipt Date: 20210617
  Transmission Date: 20210717
  Serious: Yes (Hospitalization)
  Sender: FDA-Public Use
  Company Number: IL-ABBVIE-20K-082-3501820-00

PATIENT
  Age: 69 Year
  Sex: Female
  Weight: 72 kg

DRUGS (23)
  1. VENETOCLAX. [Suspect]
     Active Substance: VENETOCLAX
     Dosage: 200 MG, RAMP UP
     Route: 048
     Dates: start: 20200528, end: 20200528
  2. AZACITIDINE. [Suspect]
     Active Substance: AZACITIDINE
     Dosage: 135 MG, CYCLE 3
     Route: 058
     Dates: start: 20200806, end: 20200816
  3. DIGOXIN. [Concomitant]
     Active Substance: DIGOXIN
     Indication: MYOCARDIAL ISCHAEMIA
     Dates: start: 2019
  4. VENETOCLAX. [Suspect]
     Active Substance: VENETOCLAX
     Dosage: 400 MG, INTERRUPTION DUE TO COUNT RECOVERY (ANC, PLATELETS OR HEMOGLOBIN)
     Route: 048
     Dates: start: 20200529, end: 20200722
  5. VENETOCLAX. [Suspect]
     Active Substance: VENETOCLAX
     Dosage: 400 MG, INTERRUPTION DUE TO COUNT RECOVERY (ANC, PLATELETS OR HEMOGLOBIN)
     Route: 048
     Dates: start: 20201206, end: 20201212
  6. CARDILOC [Concomitant]
     Active Substance: BISOPROLOL FUMARATE
     Indication: MYOCARDIAL ISCHAEMIA
     Dates: start: 2018
  7. AZACITIDINE. [Suspect]
     Active Substance: AZACITIDINE
     Dosage: 135 MG, CYCLE 6
     Route: 058
     Dates: start: 20201118, end: 20201126
  8. ENTRESTO [Concomitant]
     Active Substance: SACUBITRIL\VALSARTAN
     Indication: MYOCARDIAL ISCHAEMIA
     Dates: start: 2018
  9. NOVORAPID [Concomitant]
     Active Substance: INSULIN ASPART
     Indication: DIABETES MELLITUS
     Dates: start: 2012
  10. VENETOCLAX. [Suspect]
     Active Substance: VENETOCLAX
     Dosage: 400 MG, INTERRUPTION DUE TO COUNT RECOVERY (ANC, PLATELETS OR HEMOGLOBIN)
     Route: 048
     Dates: start: 20200906, end: 20200920
  11. VENETOCLAX. [Suspect]
     Active Substance: VENETOCLAX
     Route: 048
     Dates: start: 20201220
  12. AZACITIDINE. [Suspect]
     Active Substance: AZACITIDINE
     Dosage: 135 MG, CYCLE 2
     Route: 058
     Dates: start: 20200708, end: 20200716
  13. AZACITIDINE. [Suspect]
     Active Substance: AZACITIDINE
     Dosage: 135 MG, CYCLE 5
     Route: 058
     Dates: start: 20201018, end: 20201026
  14. ASPIRIN. [Concomitant]
     Active Substance: ASPIRIN
     Indication: MYOCARDIAL ISCHAEMIA
     Dates: start: 2016
  15. VENETOCLAX. [Suspect]
     Active Substance: VENETOCLAX
     Dosage: 400 MG, INTERRUPTION DUE TO COUNT RECOVERY (ANC, PLATELETS OR HEMOGLOBIN)
     Route: 048
     Dates: start: 20200806, end: 20200820
  16. PFIZER?BIONTECH COVID?19 VACCINE [Concomitant]
     Active Substance: TOZINAMERAN
     Route: 030
     Dates: start: 20210214, end: 20210214
  17. VENETOCLAX. [Suspect]
     Active Substance: VENETOCLAX
     Dosage: 400 MG, INTERRUPTION DUE TO COUNT RECOVERY (ANC, PLATELETS OR HEMOGLOBIN)
     Route: 048
     Dates: start: 20201018, end: 20201101
  18. VENETOCLAX. [Suspect]
     Active Substance: VENETOCLAX
     Dosage: 400 MG, INTERRUPTION DUE TO ADVERSE EVENT
     Route: 048
     Dates: start: 20201118, end: 20201126
  19. AZACITIDINE. [Suspect]
     Active Substance: AZACITIDINE
     Indication: ACUTE MYELOID LEUKAEMIA
     Dosage: 135 MG, CYCLE 1
     Route: 058
     Dates: start: 20200527, end: 20200602
  20. AZACITIDINE. [Suspect]
     Active Substance: AZACITIDINE
     Dosage: 135 MG, CYCLE 4
     Route: 058
     Dates: start: 20200906, end: 20200914
  21. PFIZER?BIONTECH COVID?19 VACCINE [Concomitant]
     Active Substance: TOZINAMERAN
     Indication: COVID-19 IMMUNISATION
     Route: 030
     Dates: start: 20210121, end: 20210121
  22. VENETOCLAX. [Suspect]
     Active Substance: VENETOCLAX
     Indication: ACUTE MYELOID LEUKAEMIA
     Dosage: 100 MG, RAMP UP
     Route: 048
     Dates: start: 20200527, end: 20200527
  23. FUSID [Concomitant]
     Indication: MYOCARDIAL ISCHAEMIA
     Dates: start: 2010

REACTIONS (5)
  - Febrile neutropenia [Recovered/Resolved]
  - Bacteraemia [Recovered/Resolved]
  - Febrile neutropenia [Recovered/Resolved]
  - Pulmonary congestion [Recovered/Resolved]
  - Sepsis [Recovered/Resolved]

NARRATIVE: CASE EVENT DATE: 20200626
